FAERS Safety Report 25699342 (Version 1)
Quarter: 2025Q3

REPORT INFORMATION
  Report Type: Report from Study
  Country: US (occurrence: US)
  Receive Date: 20250819
  Receipt Date: 20250819
  Transmission Date: 20251020
  Serious: Yes (Other)
  Sender: UCB
  Company Number: US-UCBSA-2025050551

PATIENT
  Age: 22 Year
  Sex: Female
  Weight: 59 kg

DRUGS (1)
  1. FINTEPLA [Suspect]
     Active Substance: FENFLURAMINE
     Indication: Severe myoclonic epilepsy of infancy
     Dosage: 2.5 MILLILITER, 2X/DAY (BID)
     Route: 048

REACTIONS (2)
  - Aortic valve thickening [Not Recovered/Not Resolved]
  - Aortic valve calcification [Not Recovered/Not Resolved]

NARRATIVE: CASE EVENT DATE: 20250809
